FAERS Safety Report 11789657 (Version 1)
Quarter: 2015Q4

REPORT INFORMATION
  Report Type: Spontaneous
  Country: BE (occurrence: BE)
  Receive Date: 20151201
  Receipt Date: 20151201
  Transmission Date: 20160305
  Serious: Yes (Hospitalization, Other)
  Sender: FDA-Public Use
  Company Number: BE-GLAXOSMITHKLINE-BE2015GSK167980

PATIENT
  Age: 64 Year
  Sex: Female

DRUGS (3)
  1. ANTABUSE [Interacting]
     Active Substance: DISULFIRAM
     Indication: ALCOHOL ABUSE
     Dosage: 400 MG, QD
     Route: 065
  2. WELLBUTRIN XL [Suspect]
     Active Substance: BUPROPION HYDROCHLORIDE
     Indication: AFFECTIVE DISORDER
     Dosage: 300 MG, QD
     Route: 065
  3. LOPRAZOLAM [Concomitant]
     Active Substance: LOPRAZOLAM
     Indication: PRODUCT USED FOR UNKNOWN INDICATION
     Dosage: UNK
     Route: 065

REACTIONS (14)
  - Drug interaction [Unknown]
  - Apraxia [Recovering/Resolving]
  - Electroencephalogram abnormal [Recovered/Resolved]
  - Cerebral atrophy [Recovering/Resolving]
  - Encephalopathy [Recovering/Resolving]
  - Hypertonia [Recovering/Resolving]
  - Bradykinesia [Recovering/Resolving]
  - Bradyphrenia [Recovering/Resolving]
  - Cogwheel rigidity [Recovering/Resolving]
  - Balance disorder [Recovering/Resolving]
  - Freezing phenomenon [Recovering/Resolving]
  - Gait disturbance [Recovering/Resolving]
  - White matter lesion [Recovering/Resolving]
  - Disorientation [Recovering/Resolving]
